FAERS Safety Report 12545222 (Version 2)
Quarter: 2018Q4

REPORT INFORMATION
  Report Type: Spontaneous
  Country: US (occurrence: US)
  Receive Date: 20160711
  Receipt Date: 20181219
  Transmission Date: 20190204
  Serious: Yes (Hospitalization)
  Sender: FDA-Public Use
  Company Number: US-DSJP-DSU-2016-115259

PATIENT

DRUGS (6)
  1. BENICAR HCT [Suspect]
     Active Substance: HYDROCHLOROTHIAZIDE\OLMESARTAN MEDOXOMIL
     Indication: HYPERTENSION
     Dosage: 20/12.5MG, QD
     Route: 048
     Dates: start: 2009
  2. BENICAR [Suspect]
     Active Substance: OLMESARTAN MEDOXOMIL
     Dosage: 20 MG HALF TABLET, QD
     Route: 048
  3. BENICAR HCT [Suspect]
     Active Substance: HYDROCHLOROTHIAZIDE\OLMESARTAN MEDOXOMIL
     Dosage: UNK
  4. LOMOTIL                            /00384302/ [Suspect]
     Active Substance: LOPERAMIDE HYDROCHLORIDE
     Dosage: 1 DF, QID
     Route: 048
     Dates: start: 201402, end: 201402
  5. BENICAR [Suspect]
     Active Substance: OLMESARTAN MEDOXOMIL
     Indication: HYPERTENSION
     Dosage: 20 MG, QD
     Route: 048
     Dates: start: 2009
  6. LOMOTIL                            /00384302/ [Suspect]
     Active Substance: LOPERAMIDE HYDROCHLORIDE
     Indication: DIARRHOEA
     Dosage: 2 DF, QID
     Route: 048
     Dates: start: 201402, end: 201402

REACTIONS (5)
  - Sprue-like enteropathy [Not Recovered/Not Resolved]
  - Constipation [Recovered/Resolved]
  - Haematuria [Not Recovered/Not Resolved]
  - Large intestine polyp [Recovered/Resolved]
  - Haemorrhoids [Unknown]

NARRATIVE: CASE EVENT DATE: 2010
